FAERS Safety Report 15899092 (Version 1)
Quarter: 2019Q1

REPORT INFORMATION
  Report Type: Spontaneous
  Country: US (occurrence: US)
  Receive Date: 20190201
  Receipt Date: 20190201
  Transmission Date: 20190417
  Serious: No
  Sender: FDA-Public Use
  Company Number: US-TEVA-2019-US-997815

PATIENT
  Sex: Female
  Weight: 66 kg

DRUGS (1)
  1. QVAR REDIHALER [Suspect]
     Active Substance: BECLOMETHASONE DIPROPIONATE
     Indication: ASTHMA
     Dosage: TWO PUFFS TWICE DAILY
     Route: 065
     Dates: end: 2011

REACTIONS (5)
  - Eye pain [Unknown]
  - Eye swelling [Unknown]
  - Feeling abnormal [Unknown]
  - Dyspnoea [Unknown]
  - Headache [Unknown]
